FAERS Safety Report 23865349 (Version 3)
Quarter: 2024Q4

REPORT INFORMATION
  Report Type: Report from Study
  Country: US (occurrence: US)
  Receive Date: 20240517
  Receipt Date: 20241018
  Transmission Date: 20250115
  Serious: No
  Sender: ACADIA PHARMACEUTICALS
  Company Number: US-ACADIA PHARMACEUTICALS INC.-ACA-2024-PIM-002050

PATIENT
  Age: 73 Year
  Sex: Male

DRUGS (26)
  1. NUPLAZID [Suspect]
     Active Substance: PIMAVANSERIN TARTRATE
     Indication: Dementia
     Dosage: 34 MILLIGRAM, QD
     Route: 048
     Dates: start: 20230508
  2. NUPLAZID [Suspect]
     Active Substance: PIMAVANSERIN TARTRATE
     Indication: Hallucination
     Dosage: 34 MILLIGRAM, QD
     Route: 048
     Dates: end: 20240920
  3. NUPLAZID [Suspect]
     Active Substance: PIMAVANSERIN TARTRATE
     Indication: Dementia
  4. NUPLAZID [Suspect]
     Active Substance: PIMAVANSERIN TARTRATE
     Indication: Parkinson^s disease psychosis
  5. ASPIRIN [Concomitant]
     Active Substance: ASPIRIN
  6. TAMSULOSIN [Concomitant]
     Active Substance: TAMSULOSIN
  7. OMEPRAZOLE [Concomitant]
     Active Substance: OMEPRAZOLE
  8. LOSARTAN [Concomitant]
     Active Substance: LOSARTAN
  9. MELOXICAM [Concomitant]
     Active Substance: MELOXICAM
  10. AMLODIPINE [Concomitant]
     Active Substance: AMLODIPINE BESYLATE
  11. CARBIDOPA\LEVODOPA [Concomitant]
     Active Substance: CARBIDOPA\LEVODOPA
  12. DONEPEZIL [Concomitant]
     Active Substance: DONEPEZIL
  13. NUEDEXTA [Concomitant]
     Active Substance: DEXTROMETHORPHAN HYDROBROMIDE\QUINIDINE SULFATE
  14. ATORVASTATIN [Concomitant]
     Active Substance: ATORVASTATIN
  15. GINGER ROOT [ZINGIBER OFFICINALE RHIZOME] [Concomitant]
  16. TYLENOL [Concomitant]
     Active Substance: ACETAMINOPHEN
  17. AZELASTINE [Concomitant]
     Active Substance: AZELASTINE
  18. VENTOLIN [Concomitant]
     Active Substance: ALBUTEROL SULFATE
  19. SYSTANE (HYPROMELLOSE 2910 (4000 MPA.S)) [Concomitant]
     Active Substance: HYPROMELLOSE 2910 (4000 MPA.S)
  20. TRIAMCINOLONE [Concomitant]
     Active Substance: TRIAMCINOLONE
     Dosage: 0.1 PERCENT PST
  21. BENZONATATE [Concomitant]
     Active Substance: BENZONATATE
  22. CLINDAMYCIN [Concomitant]
     Active Substance: CLINDAMYCIN
  23. VITAMINS NOS [Concomitant]
     Active Substance: VITAMINS
  24. MELATONIN [Concomitant]
     Active Substance: MELATONIN
  25. QUETIAPINE [Concomitant]
     Active Substance: QUETIAPINE
  26. OXYBUTYNIN [Concomitant]
     Active Substance: OXYBUTYNIN

REACTIONS (1)
  - Hallucination [Not Recovered/Not Resolved]

NARRATIVE: CASE EVENT DATE: 20240407
